FAERS Safety Report 9709810 (Version 1)
Quarter: 2013Q4

REPORT INFORMATION
  Report Type: Spontaneous
  Country: US (occurrence: US)
  Receive Date: 20131126
  Receipt Date: 20131126
  Transmission Date: 20140711
  Serious: No
  Sender: FDA-Public Use
  Company Number: US-PFIZER INC-2013336316

PATIENT
  Sex: Male

DRUGS (1)
  1. TIKOSYN [Suspect]
     Dosage: UNK
     Dates: start: 201207

REACTIONS (4)
  - Nasopharyngitis [Recovered/Resolved]
  - Discomfort [Recovered/Resolved]
  - Oropharyngeal pain [Recovered/Resolved]
  - Respiratory disorder [Recovered/Resolved]
